FAERS Safety Report 6452433-X (Version None)
Quarter: 2009Q4

REPORT INFORMATION
  Report Type: 
  Country: None (occurrence: None)
  Receive Date: 20091123
  Receipt Date: 20091110
  Transmission Date: 20100525
  Serious: Yes (Death)
  Sender: FDA-Public Use
  Company Number: FI-GENENTECH-294369

PATIENT
  Age: 79 Year
  Sex: Male

DRUGS (1)
  1. AVASTIN [Suspect]
     Indication: RENAL CANCER
     Dosage: 10 MG/KG, Q2W
     Route: 042

REACTIONS (1)
  - DEATH [None]
